FAERS Safety Report 6047623-4 (Version None)
Quarter: 2009Q1

REPORT INFORMATION
  Report Type: 
  Country: None (occurrence: None)
  Receive Date: 20090123
  Receipt Date: 20090120
  Transmission Date: 20090719
  Serious: Yes (Death)
  Sender: FDA-Public Use
  Company Number: US-BAYER-200911275NA

PATIENT
  Age: 60 Year
  Sex: Male
  Weight: 178 kg

DRUGS (19)
  1. DACARBAZINE [Suspect]
     Indication: METASTATIC MALIGNANT MELANOMA
     Route: 042
     Dates: start: 20081017, end: 20081205
  2. IMC-1121B [Suspect]
     Indication: METASTATIC MALIGNANT MELANOMA
     Route: 042
     Dates: start: 20081017, end: 20081205
  3. POTASSIUM CHLORIDE [Concomitant]
     Indication: MINERAL SUPPLEMENTATION
     Dosage: TOTAL DAILY DOSE: 240 MEQ
     Route: 048
  4. TEKTURNA [Concomitant]
     Indication: HYPERTENSION
     Dosage: TOTAL DAILY DOSE: 300 MG
     Route: 048
  5. BACTROBAN [Concomitant]
     Route: 061
  6. BYSTOLIC [Concomitant]
     Indication: HYPERTENSION
     Dosage: TOTAL DAILY DOSE: 10 MG
     Route: 048
  7. CENTRUM SILVER [Concomitant]
     Indication: SUPPLEMENTATION THERAPY
     Route: 048
  8. CLARITIN [Concomitant]
     Indication: HYPERSENSITIVITY
     Dosage: TOTAL DAILY DOSE: 10 MG
     Route: 048
  9. COMPAZINE [Concomitant]
     Indication: NAUSEA
     Route: 048
  10. DARVON [Concomitant]
     Indication: PAIN
     Route: 048
  11. FIBER [Concomitant]
     Indication: SUPPLEMENTATION THERAPY
     Dosage: TOTAL DAILY DOSE: 3000 MG
     Route: 048
  12. FISH OIL [Concomitant]
     Indication: SUPPLEMENTATION THERAPY
     Dosage: TOTAL DAILY DOSE: 2000 MG
     Route: 048
  13. FUROSEMIDE [Concomitant]
     Indication: BLOOD PRESSURE MANAGEMENT
     Dosage: TOTAL DAILY DOSE: 80 MG
     Route: 048
  14. HYDROCHLOROTHIAZIDE [Concomitant]
     Indication: DRUG USE FOR UNKNOWN INDICATION
     Dosage: TOTAL DAILY DOSE: 25 MG
     Route: 048
  15. LISINOPRIL [Concomitant]
     Indication: HYPERTENSION
     Dosage: TOTAL DAILY DOSE: 80 MG
     Route: 048
  16. METFORMIN HCL [Concomitant]
     Indication: DIABETES MELLITUS
     Dosage: TOTAL DAILY DOSE: 500 MG
     Route: 048
  17. NEURONTIN [Concomitant]
     Indication: PAIN
     Dosage: TOTAL DAILY DOSE: 900 MG
     Route: 048
  18. NORVASC [Concomitant]
     Indication: HYPERTENSION
     Dosage: TOTAL DAILY DOSE: 5 MG
     Route: 048
  19. PROBENECID [Concomitant]
     Indication: GOUT
     Dosage: TOTAL DAILY DOSE: 1000 MG
     Route: 048

REACTIONS (1)
  - CARDIAC ARREST [None]
